FAERS Safety Report 21718710 (Version 1)
Quarter: 2022Q4

REPORT INFORMATION
  Report Type: Spontaneous
  Country: IR (occurrence: None)
  Receive Date: 20221213
  Receipt Date: 20221213
  Transmission Date: 20230113
  Serious: Yes (Other)
  Sender: FDA-Public Use
  Company Number: IR-ROCHE-3232718

PATIENT
  Age: 39 Year
  Sex: Female

DRUGS (1)
  1. EVRYSDI [Suspect]
     Active Substance: RISDIPLAM
     Indication: Spinal muscular atrophy
     Dosage: ONE BOTTLE HAS BEEN USED FOR 11 DAYS
     Route: 048
     Dates: start: 20221119

REACTIONS (2)
  - Cerebrospinal fluid leakage [Unknown]
  - Headache [Unknown]
